FAERS Safety Report 13589498 (Version 1)
Quarter: 2017Q2

REPORT INFORMATION
  Report Type: Spontaneous
  Country: US (occurrence: US)
  Receive Date: 20170529
  Receipt Date: 20170529
  Transmission Date: 20170830
  Serious: No
  Sender: FDA-Public Use
  Company Number: US-ALKABELLO-2017AA001586

PATIENT
  Sex: Female

DRUGS (1)
  1. TAE BULK UNSPECIFIED [Suspect]
     Active Substance: ALLERGENIC EXTRACTS

REACTIONS (2)
  - Incorrect route of drug administration [Unknown]
  - Off label use [Unknown]
